FAERS Safety Report 4458583-1 (Version None)
Quarter: 2004Q3

REPORT INFORMATION
  Report Type: 
  Country: None (occurrence: None)
  Receive Date: 20040917
  Receipt Date: 20030905
  Transmission Date: 20050211
  Serious: Yes (Hospitalization)
  Sender: FDA-Public Use
  Company Number: US-JNJFOC-20030902107

PATIENT
  Age: 32 Year
  Sex: Female
  Weight: 47.6277 kg

DRUGS (9)
  1. TOPAMAX [Suspect]
     Indication: CONVULSION
     Dosage: SEE IMAGE
     Route: 048
     Dates: start: 20030401, end: 20030723
  2. TOPAMAX [Suspect]
     Indication: CONVULSION
     Dosage: SEE IMAGE
     Route: 048
     Dates: start: 20030820, end: 20030827
  3. TOPAMAX [Suspect]
     Indication: CONVULSION
     Dosage: SEE IMAGE
     Route: 048
     Dates: start: 20030827, end: 20030903
  4. TOPAMAX [Suspect]
     Indication: CONVULSION
     Dosage: SEE IMAGE
     Route: 048
     Dates: start: 20030101
  5. TOPAMAX [Suspect]
     Indication: CONVULSION
     Dosage: SEE IMAGE
     Route: 048
     Dates: start: 20030723
  6. TOPAMAX [Suspect]
     Indication: CONVULSION
     Dosage: SEE IMAGE
     Route: 048
     Dates: start: 20030903
  7. DIFLUCAN [Concomitant]
  8. POTASSIUM BICARBONATE (POTASSIUM BICARBONATE) [Concomitant]
  9. NEBULIZER (OTHER RESPIRATORY SYSTEM PRODUCTS) [Concomitant]

REACTIONS (1)
  - METABOLIC ACIDOSIS [None]
